FAERS Safety Report 8290118-8 (Version None)
Quarter: 2012Q2

REPORT INFORMATION
  Report Type: 
  Country: None (occurrence: None)
  Receive Date: 20120417
  Receipt Date: 20120410
  Transmission Date: 20120825
  Serious: No
  Sender: FDA-Public Use
  Company Number: US-B.I. PHARMACEUTICALS,INC./RIDGEFIELD-2012-BP-06697BP

PATIENT
  Sex: Male

DRUGS (1)
  1. DULCOLAX [Suspect]
     Indication: FAECES HARD
     Dates: start: 20120409

REACTIONS (2)
  - SENSATION OF FOREIGN BODY [None]
  - THROAT IRRITATION [None]
